FAERS Safety Report 6071937-5 (Version None)
Quarter: 2009Q1

REPORT INFORMATION
  Report Type: 
  Country: None (occurrence: None)
  Receive Date: 20090205
  Receipt Date: 20090205
  Transmission Date: 20090719
  Serious: Yes (Hospitalization)
  Sender: FDA-Public Use
  Company Number: None

PATIENT
  Sex: Male
  Weight: 68.4932 kg

DRUGS (18)
  1. TARCEVA [Suspect]
     Indication: NON-SMALL CELL LUNG CANCER
     Dosage: 150MG QD PO
     Route: 048
     Dates: start: 20081113, end: 20081229
  2. BEVACIZUMAB [Suspect]
     Indication: NON-SMALL CELL LUNG CANCER
     Dosage: 1150 MG Q3W IV
     Route: 042
     Dates: start: 20081113
  3. BEVACIZUMAB [Suspect]
     Indication: NON-SMALL CELL LUNG CANCER
     Dosage: 1150 MG Q3W IV
     Route: 042
     Dates: start: 20081204
  4. CRESTOR [Concomitant]
  5. TOPROL-XL [Concomitant]
  6. ELIGARD [Concomitant]
  7. POTASSIUM CHLORIDE [Concomitant]
  8. NITRO-BID [Concomitant]
  9. MULTI-VITAMIN [Concomitant]
  10. VIT. C [Concomitant]
  11. FOLIC ACID [Concomitant]
  12. ATIVAN [Concomitant]
  13. RESTORIL [Concomitant]
  14. KYTRIL [Concomitant]
  15. PERCOCET [Concomitant]
  16. ZOFRAN [Concomitant]
  17. PREDNISONE [Concomitant]
  18. MAGIC MOUTHWASH [Concomitant]

REACTIONS (4)
  - ABDOMINAL PAIN [None]
  - DISEASE PROGRESSION [None]
  - NAUSEA [None]
  - VOMITING [None]
